FAERS Safety Report 18841938 (Version 1)
Quarter: 2021Q1

REPORT INFORMATION
  Report Type: Spontaneous
  Country: US (occurrence: US)
  Receive Date: 20210203
  Receipt Date: 20210203
  Transmission Date: 20210419
  Serious: Yes (Other)
  Sender: FDA-Public Use
  Company Number: US-ALLERGAN-2102753US

PATIENT
  Sex: Female
  Weight: 43.99 kg

DRUGS (4)
  1. ONDANSETRON [Concomitant]
     Active Substance: ONDANSETRON
  2. LINZESS [Suspect]
     Active Substance: LINACLOTIDE
     Indication: IRRITABLE BOWEL SYNDROME
     Dosage: 145 MG, QD
     Route: 048
     Dates: start: 202010, end: 20210111
  3. IMIPRAMINE [Concomitant]
     Active Substance: IMIPRAMINE
     Indication: OESOPHAGEAL SPASM
     Dosage: 10 MG
     Route: 048
  4. PANTOPRAZOLE [Concomitant]
     Active Substance: PANTOPRAZOLE
     Dosage: UNK, BID
     Route: 048

REACTIONS (6)
  - Large intestine polyp [Recovered/Resolved]
  - Incorrect dose administered [Unknown]
  - Gastric ulcer [Not Recovered/Not Resolved]
  - Weight decreased [Recovered/Resolved]
  - Oesophageal spasm [Not Recovered/Not Resolved]
  - Therapy interrupted [Unknown]

NARRATIVE: CASE EVENT DATE: 2020
